FAERS Safety Report 5593585-3 (Version None)
Quarter: 2008Q1

REPORT INFORMATION
  Report Type: 
  Country: None (occurrence: None)
  Receive Date: 20080116
  Receipt Date: 20080111
  Transmission Date: 20080703
  Serious: Yes (Hospitalization)
  Sender: FDA-Public Use
  Company Number: IT-ABBOTT-07P-083-0422014-00

PATIENT
  Sex: Male

DRUGS (7)
  1. MACLADIN [Suspect]
     Indication: PYREXIA
     Route: 048
     Dates: start: 20070720, end: 20070727
  2. PARACETAMOL [Suspect]
     Indication: PYREXIA
     Route: 048
     Dates: start: 20070725, end: 20070729
  3. WARFARIN SODIUM [Suspect]
     Indication: ATRIAL FIBRILLATION
     Route: 048
     Dates: start: 20020101, end: 20070729
  4. NIFEDIPINE [Concomitant]
     Indication: DRUG USE FOR UNKNOWN INDICATION
  5. CEFTRIAXONE SODIUM [Concomitant]
     Indication: DRUG USE FOR UNKNOWN INDICATION
     Dates: start: 20070727, end: 20070729
  6. VITAMINES-B-LABAZ [Concomitant]
     Indication: DRUG USE FOR UNKNOWN INDICATION
  7. AMINAPHTONE [Concomitant]
     Indication: DRUG USE FOR UNKNOWN INDICATION
     Route: 048

REACTIONS (3)
  - ANAEMIA [None]
  - HAEMATEMESIS [None]
  - MELAENA [None]
